FAERS Safety Report 16934996 (Version 1)
Quarter: 2019Q4

REPORT INFORMATION
  Report Type: Spontaneous
  Country: US (occurrence: US)
  Receive Date: 20191018
  Receipt Date: 20191018
  Transmission Date: 20200122
  Serious: Yes (Other)
  Sender: FDA-Public Use
  Company Number: None

PATIENT
  Age: 32 Year
  Sex: Female
  Weight: 54 kg

DRUGS (1)
  1. CIPROFLOXACIN. [Suspect]
     Active Substance: CIPROFLOXACIN
     Indication: URINARY TRACT INFECTION
     Dosage: ?          QUANTITY:14 TABLET(S);?
     Route: 048
     Dates: start: 20191011, end: 20191013

REACTIONS (11)
  - Dizziness [None]
  - Arthralgia [None]
  - Product prescribing issue [None]
  - Nervous system disorder [None]
  - Nerve injury [None]
  - Paraesthesia [None]
  - Burning sensation [None]
  - Hypoaesthesia [None]
  - Asthenia [None]
  - Confusional state [None]
  - Disturbance in attention [None]

NARRATIVE: CASE EVENT DATE: 20191013
